FAERS Safety Report 4440681-X (Version None)
Quarter: 2004Q3

REPORT INFORMATION
  Report Type: 
  Country: None (occurrence: None)
  Receive Date: 20040728
  Receipt Date: 20040216
  Transmission Date: 20050211
  Serious: No
  Sender: FDA-Public Use
  Company Number: USA040259469

PATIENT
  Age: 37 Year
  Sex: Male
  Weight: 75 kg

DRUGS (2)
  1. STRATTERA [Suspect]
     Indication: ATTENTION DEFICIT/HYPERACTIVITY DISORDER
     Dosage: 30 MG/DAY
     Dates: start: 20040213
  2. AMOXICILLIN [Concomitant]

REACTIONS (3)
  - NERVOUSNESS [None]
  - SOMNOLENCE [None]
  - STOMACH DISCOMFORT [None]
